FAERS Safety Report 4592628-3 (Version None)
Quarter: 2005Q1

REPORT INFORMATION
  Report Type: 
  Country: None (occurrence: None)
  Receive Date: 20050228
  Receipt Date: 20050218
  Transmission Date: 20050727
  Serious: Yes (Hospitalization)
  Sender: FDA-Public Use
  Company Number: FR-JNJFOC-20050205108

PATIENT
  Age: 88 Year
  Sex: Male

DRUGS (6)
  1. TOPALGIC [Suspect]
     Indication: DRUG USE FOR UNKNOWN INDICATION
     Route: 049
  2. STILNOX [Concomitant]
     Route: 065
  3. NEXIUM [Concomitant]
     Route: 065
  4. ZOLOFT [Concomitant]
     Route: 065
  5. KARDEGIC [Concomitant]
     Route: 065
  6. TIAPRIDAL [Concomitant]
     Route: 065

REACTIONS (3)
  - CONSTIPATION [None]
  - FAECALOMA [None]
  - PROSTATITIS [None]
